FAERS Safety Report 9538627 (Version 1)
Quarter: 2013Q2

REPORT INFORMATION
  Report Type: Spontaneous
  Country: US (occurrence: None)
  Receive Date: 20130517
  Receipt Date: 20130517
  Transmission Date: 20140414
  Serious: No
  Sender: FDA-Public Use
  Company Number: 1000042491

PATIENT
  Age: 64 Year
  Sex: Female

DRUGS (5)
  1. VIIBRYD (VILAZODONE HYDROCHLORIDE) (10 MILLIGRAM, TABLETS) [Suspect]
     Indication: DEPRESSION
     Route: 048
     Dates: start: 20121202, end: 20121209
  2. VIIBRYD (VILAZODONE HYDROCHLORIDE) (10 MILLIGRAM, TABLETS) [Suspect]
     Indication: ANXIETY
     Route: 048
     Dates: start: 20121202, end: 20121209
  3. DOXEPIN (DOXEPIN) (DOXEPIN) [Suspect]
     Dosage: STOPPED
     Route: 048
  4. NEXIUM (ESOMEPRAZOLE) (ESOMEPRAZOLE) [Concomitant]
  5. MONTELUKAST (MONTELUKAST( (MONTELUKAST) [Concomitant]

REACTIONS (1)
  - Drug ineffective [None]
